FAERS Safety Report 14248903 (Version 1)
Quarter: 2017Q4

REPORT INFORMATION
  Report Type: Spontaneous
  Country: DE (occurrence: DE)
  Receive Date: 20171204
  Receipt Date: 20171204
  Transmission Date: 20180321
  Serious: Yes (Hospitalization, Other)
  Sender: FDA-Public Use
  Company Number: DE-BAYER-2017-232098

PATIENT
  Age: 25 Year
  Sex: Female
  Weight: 55 kg

DRUGS (2)
  1. JAYDESS [Suspect]
     Active Substance: LEVONORGESTREL
     Indication: CONTRACEPTION
     Dosage: 14 MCG/24HR, CONT
     Route: 015
     Dates: start: 20170922, end: 20171115
  2. MELPERON [Concomitant]
     Active Substance: MELPERONE
     Indication: LACTOSE INTOLERANCE

REACTIONS (9)
  - Pelvic inflammatory disease [None]
  - Dysmenorrhoea [None]
  - Menorrhagia [None]
  - Ovarian abscess [None]
  - Cervix inflammation [None]
  - Ovarian cyst [None]
  - Noninfective oophoritis [None]
  - Uterine inflammation [None]
  - Pelvic pain [None]
